FAERS Safety Report 5019491-0 (Version None)
Quarter: 2006Q2

REPORT INFORMATION
  Report Type: 
  Country: None (occurrence: None)
  Receive Date: 20060605
  Receipt Date: 20060605
  Transmission Date: 20061013
  Serious: Yes (Other)
  Sender: FDA-Public Use
  Company Number: None

PATIENT
  Sex: Male
  Weight: 87.9978 kg

DRUGS (2)
  1. LORTAB [Suspect]
     Indication: ARTHRALGIA
     Dosage: 1-2 TABS PRN PO
     Route: 048
     Dates: start: 20060305, end: 20060314
  2. LORTAB [Suspect]
     Indication: NECK PAIN
     Dosage: 1-2 TABS PRN PO
     Route: 048
     Dates: start: 20060305, end: 20060314

REACTIONS (3)
  - CATHETER SITE PAIN [None]
  - PNEUMONIA ASPIRATION [None]
  - RASH [None]
